FAERS Safety Report 8553623-2 (Version None)
Quarter: 2012Q3

REPORT INFORMATION
  Report Type: 
  Country: None (occurrence: None)
  Receive Date: 20120731
  Receipt Date: 20120724
  Transmission Date: 20120928
  Serious: Yes (Hospitalization)
  Sender: FDA-Public Use
  Company Number: PHHY2012CH065130

PATIENT
  Age: 81 Year
  Sex: Male

DRUGS (5)
  1. BENERVA [Concomitant]
  2. TORSEMIDE [Concomitant]
     Indication: OEDEMA
     Dosage: 5 MG, DAILY
     Route: 048
  3. BECOZYM [Concomitant]
  4. TASIGNA [Interacting]
     Indication: CHRONIC MYELOID LEUKAEMIA
     Dosage: 300 MG, BID
     Route: 048
     Dates: start: 20111121, end: 20120626
  5. CLARITHROMYCIN [Suspect]
     Indication: PNEUMONIA BACTERIAL
     Dosage: 500 MG, BID
     Route: 041
     Dates: start: 20120613, end: 20120621

REACTIONS (8)
  - DRUG INTERACTION [None]
  - PNEUMONIA [None]
  - ACUTE RESPIRATORY FAILURE [None]
  - DRUG LEVEL INCREASED [None]
  - PYREXIA [None]
  - DYSPNOEA [None]
  - PLEURAL EFFUSION [None]
  - SEPSIS [None]
